FAERS Safety Report 20728426 (Version 1)
Quarter: 2022Q2

REPORT INFORMATION
  Report Type: Report from Study
  Country: US (occurrence: US)
  Receive Date: 20220420
  Receipt Date: 20220420
  Transmission Date: 20220721
  Serious: Yes (Hospitalization, Other)
  Sender: FDA-Public Use
  Company Number: US-ABBVIE-22K-163-4342987-00

PATIENT
  Sex: Male

DRUGS (1)
  1. HUMIRA [Suspect]
     Active Substance: ADALIMUMAB
     Indication: Ankylosing spondylitis
     Route: 058
     Dates: end: 2022

REACTIONS (7)
  - Malaise [Unknown]
  - Cholecystectomy [Recovering/Resolving]
  - Appendicectomy [Recovering/Resolving]
  - Hypoaesthesia [Not Recovered/Not Resolved]
  - Head discomfort [Not Recovered/Not Resolved]
  - Feeling abnormal [Unknown]
  - Hepatic enzyme increased [Unknown]

NARRATIVE: CASE EVENT DATE: 20220101
